FAERS Safety Report 16123460 (Version 1)
Quarter: 2019Q1

REPORT INFORMATION
  Report Type: Report from Study
  Country: RO (occurrence: RO)
  Receive Date: 20190327
  Receipt Date: 20190327
  Transmission Date: 20190418
  Serious: Yes (Other)
  Sender: FDA-Public Use
  Company Number: RO-GILEAD-2019-0398290

PATIENT
  Age: 64 Year
  Sex: Female

DRUGS (3)
  1. METOCLOPRAMID [METOCLOPRAMIDE HYDROCHLORIDE] [Concomitant]
     Indication: NAUSEA
     Dosage: UNK
     Route: 048
  2. OPRYMEA [Concomitant]
     Active Substance: PRAMIPEXOLE DIHYDROCHLORIDE
     Indication: TREMOR
     Dosage: 1 TABLET/DAY
     Route: 048
  3. LEDIPASVIR/SOFOSBUVIR [Suspect]
     Active Substance: LEDIPASVIR\SOFOSBUVIR
     Indication: CHRONIC HEPATITIS C
     Dosage: 1 DF, QD
     Route: 048
     Dates: start: 20181222, end: 20190315

REACTIONS (3)
  - Heart rate increased [Recovered/Resolved]
  - Tremor [Recovered/Resolved]
  - Asthenia [Recovered/Resolved]

NARRATIVE: CASE EVENT DATE: 20181222
